FAERS Safety Report 6531088-X (Version None)
Quarter: 2010Q1

REPORT INFORMATION
  Report Type: 
  Country: None (occurrence: None)
  Receive Date: 20100108
  Receipt Date: 20100104
  Transmission Date: 20100710
  Serious: Yes (Other)
  Sender: FDA-Public Use
  Company Number: US-JNJFOC-20100101055

PATIENT
  Sex: Female
  Weight: 102.06 kg

DRUGS (2)
  1. REMICADE [Suspect]
     Dosage: STOPPED IN 2008
     Route: 042
  2. REMICADE [Suspect]
     Indication: CROHN'S DISEASE
     Route: 042

REACTIONS (1)
  - THERMAL BURN [None]
